FAERS Safety Report 8310770 (Version 5)
Quarter: 2012Q4

REPORT INFORMATION
  Report Type: 
  Country: DE (occurrence: FR)
  Receive Date: 20111226
  Receipt Date: 20121007
  Transmission Date: 20130627
  Serious: Yes (Hospitalization)
  Sender: FDA-Public Use
  Company Number: FR-BRISTOL-MYERS SQUIBB COMPANY-16301517

PATIENT
  Age: 38 Year
  Sex: Male

DRUGS (8)
  1. ABILIFY TABS [Suspect]
     Indication: BIPOLAR DISORDER
     Dosage: Dose increasd:10mg-20mg:Mar2010,start dt:Nov2009-Mar10(10 mg),Mar10-Apr11(20mg).
     Route: 048
     Dates: start: 20091106, end: 201104
  2. NORSET [Suspect]
     Indication: DEPRESSION
     Route: 048
     Dates: start: 20091106
  3. TERCIAN [Concomitant]
     Route: 048
     Dates: start: 200010
  4. SERESTA [Concomitant]
     Route: 048
     Dates: start: 201010
  5. ZYPREXA [Concomitant]
     Indication: BIPOLAR DISORDER
     Dosage: Nov2009
     Route: 048
     Dates: start: 200010, end: 20091106
  6. IMOVANE [Concomitant]
     Indication: INSOMNIA
     Route: 048
     Dates: start: 20091106
  7. NOCTRAN [Concomitant]
     Indication: INSOMNIA
     Route: 048
     Dates: start: 200010, end: 200910
  8. CYMBALTA [Concomitant]
     Dates: start: 200911

REACTIONS (1)
  - Pathological gambling [Recovered/Resolved]
